FAERS Safety Report 17017025 (Version 1)
Quarter: 2019Q4

REPORT INFORMATION
  Report Type: Spontaneous
  Country: JP (occurrence: JP)
  Receive Date: 20191111
  Receipt Date: 20191111
  Transmission Date: 20200122
  Serious: Yes (Other)
  Sender: FDA-Public Use
  Company Number: JP-PFIZER INC-2019482860

PATIENT
  Age: 50 Year

DRUGS (1)
  1. IBRANCE [Suspect]
     Active Substance: PALBOCICLIB
     Dosage: 100 (UNITS UNSPECIFIED), DAILY

REACTIONS (2)
  - Pericardial effusion [Recovered/Resolved]
  - Neoplasm progression [Recovered/Resolved]
